FAERS Safety Report 17852675 (Version 1)
Quarter: 2020Q2

REPORT INFORMATION
  Report Type: Spontaneous
  Country: CN (occurrence: CN)
  Receive Date: 20200603
  Receipt Date: 20200603
  Transmission Date: 20200714
  Serious: Yes (Life-Threatening)
  Sender: FDA-Public Use
  Company Number: CN-BEH-2020118073

PATIENT
  Age: 41 Year
  Sex: Female
  Weight: 75 kg

DRUGS (2)
  1. ALBURX [Suspect]
     Active Substance: ALBUMIN HUMAN
     Indication: SUPPLEMENTATION THERAPY
  2. ALBURX [Suspect]
     Active Substance: ALBUMIN HUMAN
     Indication: BLOOD ALBUMIN ABNORMAL
     Dosage: 10 GRAM, QD
     Route: 041
     Dates: start: 20200525, end: 20200525

REACTIONS (8)
  - Urinary incontinence [Unknown]
  - Oxygen saturation decreased [Recovering/Resolving]
  - Hyperhidrosis [Unknown]
  - Rash pruritic [Recovering/Resolving]
  - Pruritus [Recovering/Resolving]
  - Blood pressure decreased [Recovering/Resolving]
  - Chest discomfort [Recovering/Resolving]
  - Pallor [Unknown]

NARRATIVE: CASE EVENT DATE: 20200525
